FAERS Safety Report 6080444-5 (Version None)
Quarter: 2009Q1

REPORT INFORMATION
  Report Type: 
  Country: None (occurrence: None)
  Receive Date: 20090217
  Receipt Date: 20090210
  Transmission Date: 20090719
  Serious: Yes (Other)
  Sender: FDA-Public Use
  Company Number: PHHY2009BR04904

PATIENT
  Age: 61 Year
  Sex: Female
  Weight: 62.8 kg

DRUGS (3)
  1. GLEEVEC [Suspect]
     Indication: CHRONIC MYELOID LEUKAEMIA
     Dosage: 400 MG, QD
     Route: 048
     Dates: start: 20090108
  2. PANTOPRAZOLE [Concomitant]
     Indication: NAUSEA
     Dosage: 20 MG, QD
     Route: 048
  3. AMLODIPINE BESYLATE [Concomitant]
     Indication: BLOOD PRESSURE
     Dosage: 2.5 MG, QD
     Route: 048

REACTIONS (2)
  - ABDOMINAL DISTENSION [None]
  - EROSIVE OESOPHAGITIS [None]
